FAERS Safety Report 18041073 (Version 10)
Quarter: 2021Q3

REPORT INFORMATION
  Report Type: Report from Study
  Country: BR (occurrence: BR)
  Receive Date: 20200718
  Receipt Date: 20210821
  Transmission Date: 20211014
  Serious: Yes (Hospitalization, Other)
  Sender: FDA-Public Use
  Company Number: PHHY2017BR116738

PATIENT
  Age: 35 Year
  Sex: Female
  Weight: 58 kg

DRUGS (10)
  1. COSENTYX [Suspect]
     Active Substance: SECUKINUMAB
     Dosage: 300 MG, QMO, (150 MG, 2 PENS)
     Route: 058
     Dates: start: 201806
  2. COSENTYX [Suspect]
     Active Substance: SECUKINUMAB
     Dosage: 300 MG, QMO (150 MG, 2 PENS)
     Route: 058
     Dates: start: 201704
  3. PARACETAMOL [Concomitant]
     Active Substance: ACETAMINOPHEN
     Indication: PRODUCT USED FOR UNKNOWN INDICATION
     Dosage: UNK
     Route: 065
  4. HUMIRA [Concomitant]
     Active Substance: ADALIMUMAB
     Indication: PRODUCT USED FOR UNKNOWN INDICATION
     Dosage: UNK
     Route: 065
  5. COSENTYX [Suspect]
     Active Substance: SECUKINUMAB
     Dosage: 300 MG
     Route: 065
     Dates: start: 20200519
  6. COSENTYX [Suspect]
     Active Substance: SECUKINUMAB
     Indication: PSORIASIS
     Dosage: 300 MG, QMO (150 MG, 2 PENS)
     Route: 058
     Dates: start: 20161027
  7. COSENTYX [Suspect]
     Active Substance: SECUKINUMAB
     Dosage: UNK
     Route: 065
     Dates: start: 202010
  8. GABAPENTINE [Concomitant]
     Active Substance: GABAPENTIN
     Indication: PRODUCT USED FOR UNKNOWN INDICATION
     Dosage: UNK
     Route: 065
  9. STELARA [Concomitant]
     Active Substance: USTEKINUMAB
     Indication: PRODUCT USED FOR UNKNOWN INDICATION
     Dosage: UNK
     Route: 065
  10. CYCLOSPORIN SANDOZ [Suspect]
     Active Substance: CYCLOSPORINE
     Indication: PRODUCT USED FOR UNKNOWN INDICATION
     Dosage: UNK
     Route: 065

REACTIONS (52)
  - Headache [Recovered/Resolved]
  - Migraine [Recovered/Resolved]
  - Joint swelling [Unknown]
  - Inflammation [Unknown]
  - Abdominal pain [Unknown]
  - Headache [Recovering/Resolving]
  - Pain [Recovered/Resolved]
  - Skin tightness [Not Recovered/Not Resolved]
  - Skin hypertrophy [Unknown]
  - Accidental exposure to product [Unknown]
  - Muscular weakness [Not Recovered/Not Resolved]
  - Contusion [Unknown]
  - Pyrexia [Recovered/Resolved]
  - Sensitive skin [Unknown]
  - Incorrect dose administered [Unknown]
  - Pyrexia [Recovered/Resolved]
  - Myalgia [Unknown]
  - Movement disorder [Unknown]
  - Parosmia [Recovered/Resolved]
  - Taste disorder [Recovered/Resolved]
  - Injection site extravasation [Unknown]
  - Influenza [Recovered/Resolved]
  - Eye irritation [Recovered/Resolved]
  - Pyrexia [Recovered/Resolved]
  - Dry skin [Not Recovered/Not Resolved]
  - Skin exfoliation [Unknown]
  - Immunosuppression [Unknown]
  - Malaise [Recovered/Resolved]
  - Gait disturbance [Recovering/Resolving]
  - Hypokinesia [Recovering/Resolving]
  - Spinal pain [Recovering/Resolving]
  - Dysphagia [Unknown]
  - Influenza [Recovered/Resolved]
  - Ageusia [Recovered/Resolved]
  - Malaise [Recovering/Resolving]
  - Pain [Not Recovered/Not Resolved]
  - Pain in extremity [Not Recovered/Not Resolved]
  - Oral pain [Recovering/Resolving]
  - Rash [Not Recovered/Not Resolved]
  - COVID-19 [Recovered/Resolved with Sequelae]
  - Chest pain [Recovered/Resolved]
  - Pain [Unknown]
  - Psoriasis [Unknown]
  - Device issue [Unknown]
  - Arthralgia [Unknown]
  - Myelitis [Unknown]
  - Malaise [Recovered/Resolved]
  - Headache [Recovered/Resolved]
  - Anosmia [Recovered/Resolved]
  - Nausea [Recovered/Resolved]
  - Fall [Unknown]
  - Feeding disorder [Unknown]

NARRATIVE: CASE EVENT DATE: 20171124
